FAERS Safety Report 4474483-5 (Version None)
Quarter: 2004Q4

REPORT INFORMATION
  Report Type: 
  Country: None (occurrence: None)
  Receive Date: 20041014
  Receipt Date: 20040930
  Transmission Date: 20050328
  Serious: Yes (Hospitalization)
  Sender: FDA-Public Use
  Company Number: AU-GLAXOSMITHKLINE-B0346740A

PATIENT
  Age: 49 Year
  Sex: Female

DRUGS (5)
  1. LAMIVUDINE [Suspect]
     Dosage: 150MG TWICE PER DAY
     Route: 065
  2. ZIDOVUDINE [Suspect]
     Dosage: 300MG TWICE PER DAY
     Route: 065
  3. INDINAVIR [Suspect]
     Dosage: 800MG TWICE PER DAY
     Route: 065
  4. RITONAVIR [Suspect]
     Dosage: 100MG TWICE PER DAY
     Route: 065
  5. GLIBENCLAMIDE [Concomitant]
     Route: 065

REACTIONS (9)
  - BACK PAIN [None]
  - CD4 LYMPHOCYTES DECREASED [None]
  - FATIGUE [None]
  - HEADACHE [None]
  - MALAISE [None]
  - PYREXIA [None]
  - VIRAEMIA [None]
  - VIRAL LOAD INCREASED [None]
  - WEIGHT DECREASED [None]
